FAERS Safety Report 4621674-6 (Version None)
Quarter: 2005Q1

REPORT INFORMATION
  Report Type: 
  Country: None (occurrence: None)
  Receive Date: 20050328
  Receipt Date: 20050318
  Transmission Date: 20050727
  Serious: Yes (Other)
  Sender: FDA-Public Use
  Company Number: 2005048102

PATIENT
  Age: 40 Year
  Sex: Female

DRUGS (1)
  1. DEPO-PROVERA [Suspect]
     Indication: ILL-DEFINED DISORDER

REACTIONS (4)
  - ABASIA [None]
  - BACK PAIN [None]
  - DECREASED ACTIVITY [None]
  - PAIN IN EXTREMITY [None]
